FAERS Safety Report 23707809 (Version 2)
Quarter: 2024Q2

REPORT INFORMATION
  Report Type: Spontaneous
  Country: DE (occurrence: DE)
  Receive Date: 20240404
  Receipt Date: 20240422
  Transmission Date: 20240716
  Serious: Yes (Other)
  Sender: FDA-Public Use
  Company Number: DE-TEVA-VS-3178141

PATIENT
  Age: 57 Year
  Sex: Male

DRUGS (13)
  1. VINCRISTINE [Suspect]
     Active Substance: VINCRISTINE
     Indication: Hodgkin^s disease nodular sclerosis stage III
     Dosage: RECEIVED 5 CYCLES.PART OF BEACOPP REGIMEN
     Route: 065
  2. CYCLOPHOSPHAMIDE [Suspect]
     Active Substance: CYCLOPHOSPHAMIDE
     Indication: Hodgkin^s disease nodular sclerosis stage III
     Dosage: RECEIVED 5 CYCLES.PART OF BEACOPP REGIMEN
     Route: 065
  3. DEXAMETHASONE [Concomitant]
     Active Substance: DEXAMETHASONE
     Indication: Hodgkin^s disease nodular sclerosis stage III
     Dosage: ON DAY 1-28 IN A 28 DAYS CYCLE
     Route: 048
     Dates: start: 202208, end: 202305
  4. EVEROLIMUS [Suspect]
     Active Substance: EVEROLIMUS
     Indication: Hodgkin^s disease nodular sclerosis stage III
     Dosage: ON DAY 1-28 IN A 28 DAYS CYCLE
     Route: 048
     Dates: start: 202208, end: 202305
  5. BLEOMYCIN [Suspect]
     Active Substance: BLEOMYCIN SULFATE
     Indication: Hodgkin^s disease nodular sclerosis stage III
     Dosage: RECEIVED 5 CYCLES. PART OF BEACOPP REGIMEN
     Route: 065
  6. PROCARBAZINE [Suspect]
     Active Substance: PROCARBAZINE
     Indication: Hodgkin^s disease nodular sclerosis stage III
     Dosage: RECEIVED 5 CYCLES. PART OF BEACOPP REGIMEN
     Route: 065
  7. PREDNISOLONE [Suspect]
     Active Substance: PREDNISOLONE
     Indication: Hodgkin^s disease nodular sclerosis stage III
     Dosage: RECEIVED 5 CYCLES.PART OF BEACOPP REGIMEN
     Route: 065
  8. ETOPOSIDE [Suspect]
     Active Substance: ETOPOSIDE
     Indication: Hodgkin^s disease nodular sclerosis stage III
     Dosage: RECEIVED 5 CYCLES. PART OF BEACOPP REGIMEN
     Route: 065
  9. BRENTUXIMAB VEDOTIN [Suspect]
     Active Substance: BRENTUXIMAB VEDOTIN
     Indication: Hodgkin^s disease nodular sclerosis stage III
     Dosage: RECEIVED 7 CYCLES
     Route: 065
     Dates: start: 2020, end: 202011
  10. PEMBROLIZUMAB [Suspect]
     Active Substance: PEMBROLIZUMAB
     Indication: Hodgkin^s disease nodular sclerosis stage III
     Dosage: RECEIVED 24 CYCLES
     Route: 065
     Dates: start: 202011, end: 202207
  11. PIOGLITAZONE [Suspect]
     Active Substance: PIOGLITAZONE
     Indication: Hodgkin^s disease nodular sclerosis stage III
     Dosage: ON DAY 1-28 IN A 28 DAYS CYCLE
     Route: 048
     Dates: start: 202208, end: 202305
  12. TREOSULFAN [Concomitant]
     Active Substance: TREOSULFAN
     Indication: Hodgkin^s disease nodular sclerosis stage III
     Dosage: ON DAY 1-28 IN A 28 DAYS CYCLE
     Route: 048
     Dates: start: 202208, end: 202305
  13. ADRIAMYCIN [Suspect]
     Active Substance: DOXORUBICIN HYDROCHLORIDE
     Indication: Hodgkin^s disease nodular sclerosis stage III
     Dosage: RECEIVED 5 CYCLES. PART OF BEACOPP REGIMEN
     Route: 065

REACTIONS (6)
  - Urinary tract infection [Recovered/Resolved]
  - Pneumonitis chemical [Recovered/Resolved]
  - Pneumonia [Recovered/Resolved]
  - Weight increased [Recovered/Resolved]
  - Drug ineffective [Unknown]
  - Oedema peripheral [Recovered/Resolved]

NARRATIVE: CASE EVENT DATE: 20230501
